FAERS Safety Report 4885761-X (Version None)
Quarter: 2006Q1

REPORT INFORMATION
  Report Type: 
  Country: None (occurrence: None)
  Receive Date: 20060117
  Receipt Date: 20060106
  Transmission Date: 20060701
  Serious: Yes (Death)
  Sender: FDA-Public Use
  Company Number: HQWYE237006JAN06

PATIENT
  Age: 71 Year
  Sex: Male

DRUGS (2)
  1. MYLOTARG [Suspect]
     Indication: ACUTE MYELOID LEUKAEMIA
     Dosage: 9 MG/M^2 1X PER 1 DAY, INTRAVENOUS DRIP
     Route: 041
     Dates: start: 20051110, end: 20051110
  2. MYLOTARG [Suspect]
     Indication: ACUTE MYELOID LEUKAEMIA
     Dosage: 9 MG/M^2 1X PER 1 DAY, INTRAVENOUS DRIP
     Route: 041
     Dates: start: 20051124, end: 20051124

REACTIONS (1)
  - CEREBRAL HAEMORRHAGE [None]
